FAERS Safety Report 18514343 (Version 3)
Quarter: 2020Q4

REPORT INFORMATION
  Report Type: Spontaneous
  Country: US (occurrence: US)
  Receive Date: 20201118
  Receipt Date: 20201209
  Transmission Date: 20210114
  Serious: Yes (Life-Threatening, Hospitalization, Other)
  Sender: FDA-Public Use
  Company Number: US-ACCORD-208044

PATIENT
  Age: 9 Month
  Sex: Female

DRUGS (6)
  1. DEXMEDETOMIDINE/DEXMEDETOMIDINE HYDROCHLORIDE [Suspect]
     Active Substance: DEXMEDETOMIDINE HYDROCHLORIDE
     Indication: SEDATION
     Dosage: CONTINUOUS INFUSION AT 1 MCG/KG/HOUR
     Route: 040
     Dates: start: 20200220, end: 20200220
  2. TACROLIMUS. [Interacting]
     Active Substance: TACROLIMUS
     Indication: IMMUNOSUPPRESSION
     Dosage: DOSE WAS ADJUSTED TO MAIN GOAL TROUGH LEVELS 10-12
     Route: 048
  3. FENTANYL. [Suspect]
     Active Substance: FENTANYL
     Indication: PRODUCT USED FOR UNKNOWN INDICATION
     Dosage: UP-TITRATED TO A MAXIMUM OF 3 MCG/KG/HOUR
  4. DEXMEDETOMIDINE/DEXMEDETOMIDINE HYDROCHLORIDE [Interacting]
     Active Substance: DEXMEDETOMIDINE HYDROCHLORIDE
     Indication: SEDATION
     Dosage: CONTINUOUS INFUSION AT 1 MCG/KG/HOUR
  5. MIDAZOLAM. [Concomitant]
     Active Substance: MIDAZOLAM
     Dosage: 0.05 MG/KG/DOSE
     Route: 040
  6. FENTANYL. [Suspect]
     Active Substance: FENTANYL
     Dosage: 3 MCG/KG/DOSE
     Route: 040

REACTIONS (2)
  - Drug interaction [Unknown]
  - Bradycardia [Recovered/Resolved]

NARRATIVE: CASE EVENT DATE: 20200220
